FAERS Safety Report 7090224-X (Version None)
Quarter: 2010Q4

REPORT INFORMATION
  Report Type: 
  Country: None (occurrence: None)
  Receive Date: 20101104
  Receipt Date: 20101104
  Transmission Date: 20110411
  Serious: Yes (Hospitalization)
  Sender: FDA-Public Use
  Company Number: None

PATIENT
  Age: 20 Year
  Sex: Female
  Weight: 64 kg

DRUGS (1)
  1. PROMETHAZINE [Suspect]
     Indication: PAIN
     Dosage: 25 MG ONCE IM
     Route: 030
     Dates: start: 20101022, end: 20101022

REACTIONS (11)
  - ABSCESS [None]
  - DIZZINESS [None]
  - ERYTHEMA [None]
  - HYPERSENSITIVITY [None]
  - INFECTION [None]
  - INJECTION SITE REACTION [None]
  - PAIN IN EXTREMITY [None]
  - PRURITUS [None]
  - SWELLING [None]
  - TENDERNESS [None]
  - URTICARIA [None]
